FAERS Safety Report 10602843 (Version 1)
Quarter: 2014Q4

REPORT INFORMATION
  Report Type: Spontaneous
  Country: KR (occurrence: KR)
  Receive Date: 20141124
  Receipt Date: 20141124
  Transmission Date: 20150529
  Serious: Yes (Other)
  Sender: FDA-Public Use
  Company Number: PHHY2014KR149278

PATIENT
  Age: 28 Year
  Sex: Female

DRUGS (4)
  1. PROCAINE HCL [Suspect]
     Active Substance: PROCAINE HYDROCHLORIDE
     Indication: MESOTHERAPY
     Route: 065
  2. AMINOPHYLLINE [Suspect]
     Active Substance: AMINOPHYLLINE
     Indication: MESOTHERAPY
     Route: 065
  3. PENTOXIFYLLINE. [Suspect]
     Active Substance: PENTOXIFYLLINE
     Indication: MESOTHERAPY
     Route: 065
  4. CAFFEINE SODIUM BENZOATE\PHENOBARBITAL\PHENYTOIN. [Suspect]
     Active Substance: CAFFEINE SODIUM BENZOATE\PHENOBARBITAL\PHENYTOIN
     Indication: MESOTHERAPY
     Route: 065

REACTIONS (2)
  - Injection site nodule [Recovering/Resolving]
  - Foreign body reaction [Recovering/Resolving]
